FAERS Safety Report 8957073 (Version 1)
Quarter: 2012Q4

REPORT INFORMATION
  Report Type: Spontaneous
  Country: US (occurrence: None)
  Receive Date: 20121130
  Receipt Date: 20121130
  Transmission Date: 20130627
  Serious: Yes (Death, Other)
  Sender: FDA-Public Use
  Company Number: ABR_00718_2012

PATIENT
  Age: 92 Year
  Sex: Male

DRUGS (11)
  1. ERYTHROMYCIN [Suspect]
     Indication: PRODUCT USED FOR UNKNOWN INDICATION
  2. PROPAFENONE [Suspect]
     Indication: PRODUCT USED FOR UNKNOWN INDICATION
     Route: 048
  3. DABIGATRAN [Suspect]
     Indication: ATRIAL FIBRILLATION
     Route: 048
  4. PREDNISONE [Suspect]
     Indication: PRODUCT USED FOR UNKNOWN INDICATION
     Route: 048
  5. FLUTICASONE W/SALMETEROL [Suspect]
     Indication: PRODUCT USED FOR UNKNOWN INDICATION
     Dosage: (2 DF BID, [Puff] Respiratory (inhalation))
     Route: 055
  6. OMEPRAZOLE [Concomitant]
  7. DIGOXIN [Concomitant]
  8. FINASTERIDE [Concomitant]
  9. TIOTROPIOM [Concomitant]
  10. SYNTHROID [Concomitant]
  11. FOLIC ACID [Concomitant]

REACTIONS (8)
  - Gastric ulcer haemorrhage [None]
  - Drug interaction [None]
  - Haemoglobin decreased [None]
  - Gastrointestinal haemorrhage [None]
  - Haemodynamic instability [None]
  - Blood pressure decreased [None]
  - Resuscitation [None]
  - Renal failure [None]
